FAERS Safety Report 10705226 (Version 1)
Quarter: 2015Q1

REPORT INFORMATION
  Report Type: Spontaneous
  Country: US (occurrence: US)
  Receive Date: 20150112
  Receipt Date: 20150112
  Transmission Date: 20150721
  Serious: No
  Sender: FDA-Public Use
  Company Number: US-ELI_LILLY_AND_COMPANY-US201412010198

PATIENT
  Sex: Male

DRUGS (7)
  1. LANTUS [Concomitant]
     Active Substance: INSULIN GLARGINE
     Indication: PRODUCT USED FOR UNKNOWN INDICATION
     Dosage: 34 U, EACH EVENING
  2. HUMALOG [Suspect]
     Active Substance: INSULIN LISPRO
     Dosage: UNK, PRN
  3. HUMALOG [Suspect]
     Active Substance: INSULIN LISPRO
     Dosage: 15 DF, EACH MORNING
     Route: 065
  4. HUMALOG [Suspect]
     Active Substance: INSULIN LISPRO
     Dosage: UNK, PRN
     Route: 065
     Dates: start: 2011
  5. HUMALOG [Suspect]
     Active Substance: INSULIN LISPRO
     Indication: TYPE 1 DIABETES MELLITUS
     Dosage: 15 DF, EACH MORNING
     Route: 065
     Dates: start: 2011
  6. HUMALOG [Suspect]
     Active Substance: INSULIN LISPRO
     Dosage: 30 DF, EACH EVENING
     Route: 065
     Dates: start: 2011
  7. HUMALOG [Suspect]
     Active Substance: INSULIN LISPRO
     Dosage: 30 DF, EACH EVENING
     Route: 065

REACTIONS (2)
  - Glycosylated haemoglobin increased [Unknown]
  - Blood glucose increased [Unknown]
